FAERS Safety Report 4377466-9 (Version None)
Quarter: 2004Q2

REPORT INFORMATION
  Report Type: 
  Country: None (occurrence: None)
  Receive Date: 20040609
  Receipt Date: 20040525
  Transmission Date: 20050107
  Serious: Yes (Other)
  Sender: FDA-Public Use
  Company Number: CA_040506982

PATIENT
  Age: 14 Year
  Sex: Female
  Weight: 31 kg

DRUGS (3)
  1. HUMATROPE [Suspect]
     Indication: GROWTH HORMONE DEFICIENCY
     Dosage: 0.03 MG/KG OTHER
  2. FLUOXETINE [Concomitant]
  3. CLONAZEPAM [Concomitant]

REACTIONS (4)
  - DIABETES INSIPIDUS [None]
  - DIFFUSE LARGE B-CELL LYMPHOMA [None]
  - HEADACHE [None]
  - POST PROCEDURAL COMPLICATION [None]
